FAERS Safety Report 24258427 (Version 2)
Quarter: 2024Q3

REPORT INFORMATION
  Report Type: Spontaneous
  Country: CN (occurrence: CN)
  Receive Date: 20240828
  Receipt Date: 20240830
  Transmission Date: 20241017
  Serious: Yes (Hospitalization, Other)
  Sender: PFIZER
  Company Number: CN-MLMSERVICE-20240816-PI165699-00270-1

PATIENT
  Age: 1 Year
  Sex: Female
  Weight: 9 kg

DRUGS (4)
  1. METHYLPREDNISOLONE SODIUM SUCCINATE [Suspect]
     Active Substance: METHYLPREDNISOLONE SODIUM SUCCINATE
     Indication: Immunosuppression
     Dosage: FREQ:12 H;9 MG IVGTT Q12H, FROM DAY -5 TO WEEK 2
     Route: 042
     Dates: start: 20230605
  2. ECULIZUMAB [Suspect]
     Active Substance: ECULIZUMAB
     Indication: Thrombotic microangiopathy
     Dosage: FIRST DOSE OVER A 3-HOUR PERIOD
     Route: 042
     Dates: start: 20230610, end: 20230610
  3. ECULIZUMAB [Suspect]
     Active Substance: ECULIZUMAB
     Indication: Atypical haemolytic uraemic syndrome
     Dosage: 300 MG, EVERY 3 WEEKS (WEEK 7, 10, 13, 16, 19)
     Route: 042
  4. ECULIZUMAB [Suspect]
     Active Substance: ECULIZUMAB
     Dosage: 300 MG, MONTHLY
     Route: 042

REACTIONS (1)
  - Thyroid disorder [Recovering/Resolving]

NARRATIVE: CASE EVENT DATE: 20230612
